FAERS Safety Report 12803400 (Version 1)
Quarter: 2016Q4

REPORT INFORMATION
  Report Type: Report from Study
  Country: US (occurrence: US)
  Receive Date: 20161003
  Receipt Date: 20161003
  Transmission Date: 20170207
  Serious: Yes (Other)
  Sender: FDA-Public Use
  Company Number: US-AMGEN-USASL2016133601

PATIENT

DRUGS (1)
  1. KYPROLIS [Suspect]
     Active Substance: CARFILZOMIB
     Indication: PRODUCT USED FOR UNKNOWN INDICATION
     Dosage: UNK
     Route: 065

REACTIONS (8)
  - Vomiting [Unknown]
  - Iron deficiency anaemia [Unknown]
  - Diabetes mellitus [Unknown]
  - Diabetic neuropathy [Unknown]
  - Pyrexia [Unknown]
  - Dyspnoea [Unknown]
  - Nausea [Unknown]
  - Oedema [Unknown]

NARRATIVE: CASE EVENT DATE: 20140929
